FAERS Safety Report 14951394 (Version 2)
Quarter: 2018Q3

REPORT INFORMATION
  Report Type: Report from Study
  Country: BR (occurrence: BR)
  Receive Date: 20180530
  Receipt Date: 20180716
  Transmission Date: 20181010
  Serious: Yes (Death, Other)
  Sender: FDA-Public Use
  Company Number: PHHY2017BR161398

PATIENT
  Sex: Male
  Weight: 53 kg

DRUGS (1)
  1. VOTRIENT [Suspect]
     Active Substance: PAZOPANIB HYDROCHLORIDE
     Indication: RENAL CANCER METASTATIC
     Dosage: 2 DF, QD
     Route: 048
     Dates: start: 20171101

REACTIONS (17)
  - Skin burning sensation [Unknown]
  - Impaired healing [Not Recovered/Not Resolved]
  - Drug ineffective [Unknown]
  - Renal cancer metastatic [Fatal]
  - Abdominal pain [Unknown]
  - Underweight [Unknown]
  - Pain [Unknown]
  - Peripheral swelling [Not Recovered/Not Resolved]
  - Drug administration error [Unknown]
  - Diabetes mellitus [Recovering/Resolving]
  - Cancer pain [Unknown]
  - Skin exfoliation [Not Recovered/Not Resolved]
  - Dry skin [Not Recovered/Not Resolved]
  - Malaise [Unknown]
  - Dysgeusia [Unknown]
  - Malignant neoplasm progression [Fatal]
  - Blister [Unknown]
